FAERS Safety Report 9653634 (Version 1)
Quarter: 2013Q4

REPORT INFORMATION
  Report Type: Spontaneous
  Country: US (occurrence: None)
  Receive Date: 20131028
  Receipt Date: 20131028
  Transmission Date: 20140711
  Serious: Yes (Life-Threatening, Other)
  Sender: FDA-Public Use
  Company Number: None

PATIENT
  Age: 66 Year
  Sex: Male
  Weight: 68.04 kg

DRUGS (1)
  1. WARFARIN [Suspect]
     Indication: CARDIAC DISORDER
     Dosage: 1 ONCE DAILY
     Dates: start: 20131001, end: 20131025

REACTIONS (2)
  - International normalised ratio abnormal [None]
  - Product quality issue [None]
